FAERS Safety Report 18102764 (Version 2)
Quarter: 2020Q4

REPORT INFORMATION
  Report Type: Spontaneous
  Country: US (occurrence: US)
  Receive Date: 20200803
  Receipt Date: 20201008
  Transmission Date: 20210113
  Serious: No
  Sender: FDA-Public Use
  Company Number: US-BRISTOL-MYERS SQUIBB COMPANY-BMS-2020-061858

PATIENT
  Age: 54 Year
  Sex: Male
  Weight: 53.5 kg

DRUGS (2)
  1. OPDIVO [Suspect]
     Active Substance: NIVOLUMAB
     Indication: COLON CANCER
     Dosage: 170 MILLIGRAM (EVERY 21 DAYS FOR 4 CYCLES FOLLOWED BY 480MLS OF OPDIVO EVERY 28 DAYS)
     Route: 042
     Dates: start: 20190119
  2. YERVOY [Suspect]
     Active Substance: IPILIMUMAB
     Indication: COLON CANCER
     Dosage: 55 MILLIGRAM (EVERY 21 DAYS, FOLLOWED BY EVERY 28 DAYS)
     Route: 042
     Dates: start: 20190119

REACTIONS (1)
  - Off label use [Unknown]

NARRATIVE: CASE EVENT DATE: 20200717
